FAERS Safety Report 5022732-7 (Version None)
Quarter: 2006Q2

REPORT INFORMATION
  Report Type: 
  Country: None (occurrence: None)
  Receive Date: 20060609
  Receipt Date: 20060530
  Transmission Date: 20061013
  Serious: Yes (Death)
  Sender: FDA-Public Use
  Company Number: FR-ABBOTT-06P-056-0334507-00

PATIENT
  Age: 38 Year
  Sex: Female

DRUGS (11)
  1. CYCLOSPORINE [Suspect]
     Indication: IMMUNOSUPPRESSION
     Dosage: NOT REPORTED
     Dates: start: 19940101, end: 20020101
  2. CYCLOSPORINE [Suspect]
     Indication: SYSTEMIC LUPUS ERYTHEMATOSUS
  3. PREDNISONE [Suspect]
     Indication: IMMUNOSUPPRESSION
  4. PREDNISONE [Suspect]
     Indication: SYSTEMIC LUPUS ERYTHEMATOSUS
     Dosage: DECREASING DOSES
  5. CHLOROQUINE PHOSPHATE [Suspect]
     Indication: IMMUNOSUPPRESSION
  6. CHLOROQUINE PHOSPHATE [Suspect]
     Indication: SYSTEMIC LUPUS ERYTHEMATOSUS
  7. METHOTREXATE [Suspect]
     Indication: IMMUNOSUPPRESSION
     Dates: start: 20020101, end: 20030101
  8. METHOTREXATE [Suspect]
     Indication: SYSTEMIC LUPUS ERYTHEMATOSUS
     Dosage: NOT REPORTED
     Dates: start: 19930101, end: 19940101
  9. METHOTREXATE [Suspect]
     Dosage: NOT REPORTED
     Dates: start: 19920101, end: 19930101
  10. CYCLOPHOSPHAMIDE [Suspect]
     Indication: IMMUNOSUPPRESSION
     Dosage: SIX INFUSIONS, TOTAL OF 3.5 G
     Dates: start: 19930101, end: 19930101
  11. CYCLOPHOSPHAMIDE [Suspect]
     Indication: SYSTEMIC LUPUS ERYTHEMATOSUS

REACTIONS (4)
  - BURKITT'S LYMPHOMA [None]
  - FACIAL PALSY [None]
  - HYPOAESTHESIA [None]
  - NERVOUS SYSTEM DISORDER [None]
